FAERS Safety Report 8347538-2 (Version None)
Quarter: 2012Q2

REPORT INFORMATION
  Report Type: 
  Country: None (occurrence: None)
  Receive Date: 20120509
  Receipt Date: 20120430
  Transmission Date: 20120825
  Serious: Yes (Other)
  Sender: FDA-Public Use
  Company Number: US-ROCHE-1064451

PATIENT
  Sex: Female

DRUGS (2)
  1. BONIVA [Suspect]
     Indication: OSTEOPOROSIS
     Dates: start: 20080701, end: 20100801
  2. FOSAMAX [Suspect]
     Indication: OSTEOPOROSIS
     Dates: start: 19980501, end: 20080601

REACTIONS (3)
  - FEMUR FRACTURE [None]
  - ANXIETY [None]
  - EMOTIONAL DISTRESS [None]
